FAERS Safety Report 17535513 (Version 3)
Quarter: 2023Q1

REPORT INFORMATION
  Report Type: Spontaneous
  Country: CA (occurrence: CA)
  Receive Date: 20200312
  Receipt Date: 20230209
  Transmission Date: 20230417
  Serious: Yes (Hospitalization, Other)
  Sender: FDA-Public Use
  Company Number: None

PATIENT
  Age: 77 Year
  Sex: Male

DRUGS (23)
  1. SANDOSTATIN LAR DEPOT [Suspect]
     Active Substance: OCTREOTIDE ACETATE
     Indication: Carcinoid tumour of the small bowel
     Dosage: 20 MG, UNKNOWN
     Route: 030
  2. SANDOSTATIN LAR DEPOT [Suspect]
     Active Substance: OCTREOTIDE ACETATE
     Dosage: 40 MG, UNKNOWN
     Route: 030
  3. SANDOSTATIN LAR DEPOT [Suspect]
     Active Substance: OCTREOTIDE ACETATE
     Dosage: 40 MG, UNKNOWN
     Route: 030
  4. METHOTREXATE SODIUM [Suspect]
     Active Substance: METHOTREXATE SODIUM
     Indication: Product used for unknown indication
     Dosage: UNK
     Route: 065
  5. CORTISONE [Suspect]
     Active Substance: CORTISONE
     Indication: Pain
     Dosage: 25 MG
     Route: 065
  6. CORTISONE [Suspect]
     Active Substance: CORTISONE
     Indication: Arthritis
  7. CORTISONE [Suspect]
     Active Substance: CORTISONE
     Indication: Pain
     Dosage: UNK
     Route: 065
  8. CORTISONE [Suspect]
     Active Substance: CORTISONE
     Indication: Arthritis
     Dosage: 25 MG, BID
     Route: 065
  9. CORTISONE [Suspect]
     Active Substance: CORTISONE
     Indication: Pain
     Dosage: UNK
     Route: 065
  10. CORTISONE [Suspect]
     Active Substance: CORTISONE
     Indication: Arthritis
  11. CALCIUM GLUCONATE [Suspect]
     Active Substance: CALCIUM GLUCONATE
     Indication: Product used for unknown indication
     Dosage: 500 MG, BID
     Route: 065
  12. CALCIUM CHLORIDE [Suspect]
     Active Substance: CALCIUM CHLORIDE
     Indication: Product used for unknown indication
     Dosage: 500 MG, BID
     Route: 065
  13. CALCIUM CARBONATE [Suspect]
     Active Substance: CALCIUM CARBONATE
     Indication: Product used for unknown indication
     Dosage: 500 MG, BID (2 EVERY 1 DAYS)
     Route: 065
  14. DESOXIMETASONE [Suspect]
     Active Substance: DESOXIMETASONE
     Indication: Product used for unknown indication
     Dosage: 25 MG, QD (EVERY 1 DAYS)
     Route: 065
  15. XGEVA [Suspect]
     Active Substance: DENOSUMAB
     Indication: Neuritis
     Dosage: UNK (SINGLE USE VIAL FOR S.C. USE ONLY. PRESERVATIVE FREE)
     Route: 058
  16. ACETAMINOPHEN [Concomitant]
     Active Substance: ACETAMINOPHEN
     Indication: Product used for unknown indication
     Dosage: UNK
     Route: 065
  17. CLOPIDOGREL BISULFATE [Concomitant]
     Active Substance: CLOPIDOGREL BISULFATE
     Indication: Product used for unknown indication
     Dosage: UNK
     Route: 065
  18. FOLIC ACID [Concomitant]
     Active Substance: FOLIC ACID
     Indication: Product used for unknown indication
     Dosage: UNK
     Route: 065
  19. LISINOPRIL [Concomitant]
     Active Substance: LISINOPRIL
     Indication: Product used for unknown indication
     Dosage: UNK
     Route: 065
  20. LOVENOX [Concomitant]
     Active Substance: ENOXAPARIN SODIUM
     Indication: Product used for unknown indication
     Dosage: UNK
     Route: 058
  21. LOVENOX [Concomitant]
     Active Substance: ENOXAPARIN SODIUM
     Dosage: UNK
     Route: 065
  22. METOPROLOL [Concomitant]
     Active Substance: METOPROLOL
     Indication: Product used for unknown indication
     Dosage: UNK
     Route: 065
  23. LASIX [Concomitant]
     Active Substance: FUROSEMIDE
     Indication: Blood pressure increased
     Dosage: 20 MG
     Route: 065

REACTIONS (31)
  - Blood pressure diastolic increased [Recovered/Resolved]
  - Blood pressure systolic increased [Recovered/Resolved]
  - Cardiac disorder [Recovered/Resolved]
  - Haemoglobin decreased [Recovered/Resolved]
  - Transfusion-related circulatory overload [Recovered/Resolved]
  - Arthritis [Recovered/Resolved]
  - Arthralgia [Recovered/Resolved]
  - Pain [Recovered/Resolved]
  - Metastases to liver [Recovered/Resolved]
  - Malignant neoplasm progression [Unknown]
  - Abdominal pain [Recovered/Resolved]
  - Cholelithiasis [Recovered/Resolved]
  - Asthenia [Recovered/Resolved]
  - Blood pressure decreased [Recovered/Resolved]
  - Blood test abnormal [Recovered/Resolved]
  - Body temperature decreased [Recovered/Resolved]
  - Carcinoid tumour of the small bowel [Recovered/Resolved]
  - Cough [Recovered/Resolved]
  - Decreased appetite [Recovered/Resolved]
  - Dyspnoea [Recovered/Resolved]
  - Epistaxis [Recovered/Resolved]
  - Fatigue [Recovered/Resolved]
  - General physical health deterioration [Recovered/Resolved]
  - Hypertension [Recovered/Resolved]
  - Influenza like illness [Recovered/Resolved]
  - Injection site pain [Recovered/Resolved]
  - Metastases to bone [Recovered/Resolved]
  - Needle issue [Recovered/Resolved]
  - Weight decreased [Recovered/Resolved]
  - Pleural effusion [Recovered/Resolved]
  - Off label use [Recovered/Resolved]
